FAERS Safety Report 5267375-5 (Version None)
Quarter: 2007Q1

REPORT INFORMATION
  Report Type: 
  Country: None (occurrence: None)
  Receive Date: 20070316
  Receipt Date: 20070306
  Transmission Date: 20070707
  Serious: Yes (Hospitalization, Other)
  Sender: FDA-Public Use
  Company Number: JP-BRISTOL-MYERS SQUIBB COMPANY-13713086

PATIENT
  Age: 30 Year
  Sex: Male

DRUGS (5)
  1. EFAVIRENZ [Suspect]
     Indication: HIV INFECTION
     Route: 048
     Dates: start: 20050218
  2. VIDEX EC [Suspect]
     Indication: HIV INFECTION
     Route: 048
     Dates: start: 20050218
  3. RETROVIR [Suspect]
     Indication: HIV INFECTION
     Route: 048
     Dates: start: 20050218
  4. BAKTAR [Suspect]
     Indication: ANTIFUNGAL PROPHYLAXIS
     Route: 048
     Dates: start: 20050121, end: 20050812
  5. LAMIVUDINE [Suspect]

REACTIONS (4)
  - BLOOD CHOLESTEROL INCREASED [None]
  - HEPATIC FUNCTION ABNORMAL [None]
  - HERPES ZOSTER [None]
  - IMMUNE RECONSTITUTION SYNDROME [None]
